FAERS Safety Report 16747560 (Version 1)
Quarter: 2019Q3

REPORT INFORMATION
  Report Type: Spontaneous
  Country: FR (occurrence: FR)
  Receive Date: 20190827
  Receipt Date: 20190827
  Transmission Date: 20191005
  Serious: Yes (Hospitalization)
  Sender: FDA-Public Use
  Company Number: FR-TEVA-2019-FR-1097054

PATIENT
  Age: 62 Year
  Sex: Male

DRUGS (11)
  1. PREGABALINE TEVA 50 MG, G?LULE [Suspect]
     Active Substance: PREGABALIN
     Indication: NEURALGIA
     Dosage: 2-0-2
     Route: 048
     Dates: start: 20190305, end: 20190716
  2. TERCIAN 40 MG/ML, SOLUTION BUVABLE EN GOUTTES [Concomitant]
     Active Substance: CYAMEMAZINE
     Indication: DELIRIUM
     Dosage: 25 GOUTTES LE SOIR
     Route: 048
     Dates: start: 20181012
  3. DOLIPRANEORO 500 MG, COMPRIM? ORODISPERSIBLE [Concomitant]
     Indication: PAIN
     Dosage: 2-2-2
     Route: 048
     Dates: start: 20181012
  4. VALIUM [Concomitant]
     Active Substance: DIAZEPAM
     Indication: ANXIETY
     Dosage: SI BESOIN (10 GOUTTES LA NUIT)
     Route: 048
     Dates: start: 20181012
  5. MOVICOL [Concomitant]
     Active Substance: POLYETHYLENE GLYCOL 3350\POTASSIUM CHLORIDE\SODIUM BICARBONATE\SODIUM CHLORIDE
     Indication: CONSTIPATION
     Dosage: 2-0-0
     Route: 048
     Dates: start: 20180626
  6. SKENAN [Concomitant]
     Active Substance: MORPHINE SULFATE
     Indication: PAIN
     Dosage: 2-0-2
     Route: 048
     Dates: start: 20190704, end: 20190730
  7. LANSOPRAZOLE MYLAN 15 MG, G?LULE GASTRO-R?SISTANTE [Concomitant]
     Indication: GASTROOESOPHAGEAL REFLUX DISEASE
     Dosage: 0-0-1
     Route: 048
     Dates: start: 20181012
  8. RISPERDAL [Concomitant]
     Active Substance: RISPERIDONE
     Indication: DELIRIUM
     Dosage: 5 MG LE SOIR
     Route: 048
     Dates: start: 20181012
  9. ACTISKENAN 5 MG, GELULE [Concomitant]
     Active Substance: MORPHINE SULFATE
     Indication: ANXIETY
     Dosage: SI BESOIN
     Route: 048
     Dates: start: 20190704, end: 20190730
  10. SERESTA 10 MG, COMPRIME [Concomitant]
     Active Substance: OXAZEPAM
     Indication: ANXIETY
     Dosage: SI BESOIN
     Route: 048
     Dates: start: 20181012
  11. ZYMAD 80 000 UI, SOLUTION BUVABLE EN AMPOULE [Concomitant]
     Active Substance: CHOLECALCIFEROL
     Indication: VITAMIN SUPPLEMENTATION
     Route: 048
     Dates: start: 20181013

REACTIONS (1)
  - Sinus bradycardia [Recovered/Resolved]

NARRATIVE: CASE EVENT DATE: 20190709
